FAERS Safety Report 6928741-2 (Version None)
Quarter: 2010Q3

REPORT INFORMATION
  Report Type: 
  Country: None (occurrence: None)
  Receive Date: 20100809
  Receipt Date: 20100210
  Transmission Date: 20110219
  Serious: No
  Sender: FDA-Public Use
  Company Number: US-001480

PATIENT
  Sex: Male
  Weight: 77.1115 kg

DRUGS (6)
  1. DEGARELIX (240 MG, 80 MG, 80 MG) [Suspect]
     Indication: PRODUCT USED FOR UNKNOWN INDICATION
     Dosage: 240 MG TOTAL SUBCUTANEOUS, SUBCUTANEOUS, SUBCUTANEOUS
     Route: 058
     Dates: start: 20090506, end: 20090506
  2. DEGARELIX (240 MG, 80 MG, 80 MG) [Suspect]
     Indication: PRODUCT USED FOR UNKNOWN INDICATION
     Dosage: 240 MG TOTAL SUBCUTANEOUS, SUBCUTANEOUS, SUBCUTANEOUS
     Route: 058
     Dates: start: 20090610, end: 20090610
  3. DEGARELIX (240 MG, 80 MG, 80 MG) [Suspect]
     Indication: PRODUCT USED FOR UNKNOWN INDICATION
     Dosage: 240 MG TOTAL SUBCUTANEOUS, SUBCUTANEOUS, SUBCUTANEOUS
     Route: 058
     Dates: start: 20090715, end: 20090715
  4. LIPITOR [Concomitant]
  5. METFORMIN [Concomitant]
  6. NIASPAN [Concomitant]

REACTIONS (2)
  - HOT FLUSH [None]
  - INJECTION SITE NODULE [None]
